FAERS Safety Report 5736596-7 (Version None)
Quarter: 2008Q2

REPORT INFORMATION
  Report Type: 
  Country: None (occurrence: None)
  Receive Date: 20080513
  Receipt Date: 20080502
  Transmission Date: 20081010
  Serious: Yes (Hospitalization)
  Sender: FDA-Public Use
  Company Number: US-PFIZER INC-2008038138

PATIENT
  Age: 69 Year
  Sex: Female
  Weight: 102 kg

DRUGS (3)
  1. IRINOTECAN HCL [Suspect]
     Indication: GLIOBLASTOMA MULTIFORME
     Dosage: DAILY DOSE:125MG/M2-FREQ:OVER 90 MIN, DAYS 1 AND 15
     Route: 042
  2. BEVACIZUMAB [Suspect]
     Indication: GLIOBLASTOMA MULTIFORME
     Dosage: DAILY DOSE:10MG/KG-FREQ:OVER 90-30 MIN, DAYS 1 AND 15
     Route: 042
  3. DEXAMETHASONE [Suspect]

REACTIONS (10)
  - ATRIAL FIBRILLATION [None]
  - BLOOD CREATINE PHOSPHOKINASE INCREASED [None]
  - BLOOD CREATININE INCREASED [None]
  - CELLULITIS [None]
  - DEHYDRATION [None]
  - HYPERGLYCAEMIA [None]
  - HYPOTENSION [None]
  - PLEURAL EFFUSION [None]
  - SOMNOLENCE [None]
  - THROMBOCYTOPENIA [None]
